FAERS Safety Report 17122701 (Version 1)
Quarter: 2019Q4

REPORT INFORMATION
  Report Type: Spontaneous
  Country: FR (occurrence: FR)
  Receive Date: 20191206
  Receipt Date: 20191206
  Transmission Date: 20200122
  Serious: Yes (Hospitalization)
  Sender: FDA-Public Use
  Company Number: FR-PFIZER INC-2019521334

PATIENT
  Age: 66 Year
  Sex: Male

DRUGS (14)
  1. LEVOFLOXACIN. [Suspect]
     Active Substance: LEVOFLOXACIN
     Indication: SEPSIS
     Dosage: 750 MG, 1X/DAY
     Route: 042
     Dates: start: 20190506
  2. ALDACTONE [Concomitant]
     Active Substance: SPIRONOLACTONE
     Dosage: 1 DF, 1X/DAY
     Route: 048
  3. KARDEGIC [Concomitant]
     Active Substance: ASPIRIN DL-LYSINE
     Dosage: 1 DF, 1X/DAY
     Route: 048
  4. BEVITINE [Concomitant]
     Active Substance: THIAMINE HYDROCHLORIDE
     Dosage: 2 DF, 1X/DAY
     Route: 048
  5. OXYNORMORO [Concomitant]
     Active Substance: OXYCODONE HYDROCHLORIDE
     Dosage: UNK (6 TABLETS FOR A DAY IF NEEDED)
     Route: 048
  6. ZYMAD [Concomitant]
     Active Substance: CHOLECALCIFEROL
     Dosage: 1 DF, EVERY 3 MONTHS
     Route: 048
  7. ECONAZOLE. [Concomitant]
     Active Substance: ECONAZOLE NITRATE
     Dosage: 1 DF, 1X/DAY
     Route: 061
  8. RIFADINE [RIFAMPICIN] [Concomitant]
     Active Substance: RIFAMPIN
     Dosage: 4 DF, 1X/DAY
     Route: 048
  9. CEFAZOLIN [Concomitant]
     Active Substance: CEFAZOLIN
     Dosage: UNK
     Route: 048
     Dates: start: 20190429
  10. PREGABALINE [Concomitant]
     Active Substance: PREGABALIN
     Dosage: 300 MG, 1X/DAY
     Route: 048
  11. BECILAN [Concomitant]
     Active Substance: PYRIDOXINE
     Dosage: 2 DF, 1X/DAY
     Route: 048
  12. DUPHALAC [Concomitant]
     Active Substance: LACTULOSE
     Dosage: 3 DF, 1X/DAY
     Route: 048
  13. LEVOFLOXACIN. [Suspect]
     Active Substance: LEVOFLOXACIN
     Indication: SEPSIS
     Dosage: 1000 MG, 1X/DAY
     Route: 048
     Dates: start: 20190520, end: 20190527
  14. OXYNORMORO [Concomitant]
     Active Substance: OXYCODONE HYDROCHLORIDE
     Dosage: 1 DF, 1X/DAY
     Route: 048

REACTIONS (3)
  - Encephalopathy [Recovered/Resolved]
  - Disturbance in attention [Recovered/Resolved]
  - Dyskinesia [Recovered/Resolved]

NARRATIVE: CASE EVENT DATE: 20190527
